FAERS Safety Report 13031025 (Version 2)
Quarter: 2016Q4

REPORT INFORMATION
  Report Type: Spontaneous
  Country: JP (occurrence: JP)
  Receive Date: 20161215
  Receipt Date: 20161222
  Transmission Date: 20170207
  Serious: Yes (Hospitalization, Other)
  Sender: FDA-Public Use
  Company Number: JP-ASTRAZENECA-2016SF26750

PATIENT
  Age: 50 Year
  Sex: Female

DRUGS (3)
  1. NOLVADEX [Suspect]
     Active Substance: TAMOXIFEN CITRATE
     Indication: INVASIVE BREAST CARCINOMA
     Dosage: DOSE UNKNOWN
     Route: 048
     Dates: start: 201405, end: 201501
  2. ZOLADEX LA [Suspect]
     Active Substance: GOSERELIN ACETATE
     Indication: INVASIVE BREAST CARCINOMA
     Dosage: 10.8MG, ONCE EVERY TWELVE WEEKS.
     Route: 058
     Dates: start: 201405, end: 201501
  3. LH-RH [Concomitant]
     Indication: INVASIVE BREAST CARCINOMA
     Dosage: DOSE UNKNOWN
     Route: 065
     Dates: start: 201405, end: 201501

REACTIONS (1)
  - Congestive cardiomyopathy [Recovered/Resolved]

NARRATIVE: CASE EVENT DATE: 201411
